FAERS Safety Report 5491953-1 (Version None)
Quarter: 2007Q4

REPORT INFORMATION
  Report Type: 
  Country: None (occurrence: None)
  Receive Date: 20071018
  Receipt Date: 20071018
  Transmission Date: 20080405
  Serious: No
  Sender: FDA-Public Use
  Company Number: None

PATIENT
  Age: 59 Year
  Sex: Male

DRUGS (1)
  1. METOPROLOL TARTRATE [Suspect]
     Indication: ANGINA PECTORIS
     Dosage: 50MG  EVERY DAY  PO
     Route: 048
     Dates: start: 20070724, end: 20070731

REACTIONS (7)
  - ASTHENIA [None]
  - BRADYCARDIA [None]
  - CARDIOVASCULAR DISORDER [None]
  - CHEST PAIN [None]
  - CONDITION AGGRAVATED [None]
  - DIABETIC NEUROPATHY [None]
  - DIZZINESS [None]
